FAERS Safety Report 5469770-8 (Version None)
Quarter: 2007Q3

REPORT INFORMATION
  Report Type: 
  Country: None (occurrence: None)
  Receive Date: 20070927
  Receipt Date: 20070427
  Transmission Date: 20080115
  Serious: No
  Sender: FDA-Public Use
  Company Number: US-AMGEN-KDL222037

PATIENT
  Sex: Male

DRUGS (2)
  1. NEUPOGEN [Suspect]
     Indication: NEUTROPENIA
     Dates: start: 20060601
  2. NEXIUM [Concomitant]

REACTIONS (3)
  - INJECTION SITE REACTION [None]
  - LOCALISED INFECTION [None]
  - RASH [None]
